FAERS Safety Report 11793031 (Version 1)
Quarter: 2015Q4

REPORT INFORMATION
  Report Type: Spontaneous
  Country: US (occurrence: US)
  Receive Date: 20151202
  Receipt Date: 20151202
  Transmission Date: 20160305
  Serious: Yes (Other)
  Sender: FDA-Public Use
  Company Number: US-MYLANLABS-2015M1041944

PATIENT

DRUGS (1)
  1. TOPIRAMATE. [Suspect]
     Active Substance: TOPIRAMATE
     Indication: HEADACHE
     Dosage: 50 MG IN MORNING AND 75 MG IN AT NIGHT
     Route: 065

REACTIONS (3)
  - Orthostatic intolerance [Unknown]
  - Eating disorder [Unknown]
  - Oligomenorrhoea [Unknown]
